FAERS Safety Report 12840881 (Version 1)
Quarter: 2016Q4

REPORT INFORMATION
  Report Type: Other
  Country: CA (occurrence: CA)
  Receive Date: 20161012
  Receipt Date: 20161012
  Transmission Date: 20170207
  Serious: Yes (Hospitalization, Disabling, Other)
  Sender: FDA-Public Use
  Company Number: CA-APOTEX-2016AP012834

PATIENT
  Age: 62 Year
  Sex: Female

DRUGS (3)
  1. COUMADINE [Suspect]
     Active Substance: WARFARIN SODIUM
     Indication: EMBOLISM VENOUS
     Dosage: 2.5 MG, QD
     Route: 048
  2. APO-METOPROLOL [Suspect]
     Active Substance: METOPROLOL
     Indication: DISCOMFORT
     Dosage: UNK
     Route: 065
  3. APO-RAMIPRIL [Suspect]
     Active Substance: RAMIPRIL
     Indication: DISCOMFORT
     Dosage: UNK
     Route: 065

REACTIONS (2)
  - Embolism [Not Recovered/Not Resolved]
  - Alopecia [Not Recovered/Not Resolved]
